FAERS Safety Report 8998042 (Version 1)
Quarter: 2013Q1

REPORT INFORMATION
  Report Type: Spontaneous
  Country: US (occurrence: US)
  Receive Date: 20130104
  Receipt Date: 20130104
  Transmission Date: 20140127
  Serious: Yes (Hospitalization, Other)
  Sender: FDA-Public Use
  Company Number: US-ASTRAZENECA-2012SE79118

PATIENT
  Age: 71 Year
  Sex: Female
  Weight: 61.7 kg

DRUGS (7)
  1. SEROQUEL XR [Suspect]
     Indication: MAJOR DEPRESSION
     Route: 048
     Dates: start: 20110925, end: 20120415
  2. SEROQUEL XR [Suspect]
     Indication: CONVULSION
     Route: 048
     Dates: start: 20110925, end: 20120415
  3. SEROQUEL XR [Suspect]
     Indication: MAJOR DEPRESSION
     Route: 048
  4. SEROQUEL XR [Suspect]
     Indication: CONVULSION
     Route: 048
  5. SEROQUEL XR [Suspect]
     Indication: MAJOR DEPRESSION
     Route: 048
     Dates: start: 20121105, end: 2012
  6. SEROQUEL XR [Suspect]
     Indication: CONVULSION
     Route: 048
     Dates: start: 20121105, end: 2012
  7. LEXAPRO [Concomitant]

REACTIONS (4)
  - Autonomic neuropathy [Recovered/Resolved]
  - Syncope [Recovered/Resolved]
  - Dizziness [Recovered/Resolved]
  - Hypotension [Unknown]
